FAERS Safety Report 9803926 (Version 4)
Quarter: 2014Q1

REPORT INFORMATION
  Report Type: Spontaneous
  Country: US (occurrence: US)
  Receive Date: 20140108
  Receipt Date: 20140313
  Transmission Date: 20141002
  Serious: Yes (Hospitalization, Other)
  Sender: FDA-Public Use
  Company Number: US-PFIZER INC-2014004064

PATIENT
  Age: 57 Year
  Sex: Female
  Weight: 86.17 kg

DRUGS (6)
  1. LYRICA [Suspect]
     Indication: FIBROMYALGIA
     Dosage: 150 MG, 2X/DAY
     Route: 048
     Dates: start: 2008
  2. LYRICA [Suspect]
     Indication: RESTLESS LEGS SYNDROME
     Dosage: 150 MG, 1X/DAY
     Route: 048
  3. TOPROL [Suspect]
     Indication: HYPERTENSION
     Dosage: UNK, 2X/DAY
  4. LISINOPRIL [Concomitant]
     Indication: HYPERTENSION
     Dosage: UNK
  5. SEROQUEL [Concomitant]
     Dosage: 100 MG (TAKING 25MG IN THE MORNING, 25MG IN THE AFTERNOON AT 3PM AND TWO 25MG AT NIGHT), DAILY
  6. ZOLOFT [Concomitant]
     Indication: DEPRESSION
     Dosage: 200 MG, 2X/DAY

REACTIONS (13)
  - Myocardial infarction [Unknown]
  - Aphagia [Unknown]
  - Malaise [Unknown]
  - Gastroenteritis viral [Unknown]
  - Vomiting [Unknown]
  - Dehydration [Unknown]
  - Dyspnoea [Unknown]
  - Cardiac disorder [Unknown]
  - Oxygen saturation decreased [Unknown]
  - Unresponsive to stimuli [Unknown]
  - Electrocardiogram abnormal [Unknown]
  - Bacterial test positive [Unknown]
  - Endocarditis bacterial [Unknown]
